FAERS Safety Report 8233430-0 (Version None)
Quarter: 2012Q1

REPORT INFORMATION
  Report Type: 
  Country: None (occurrence: None)
  Receive Date: 20120326
  Receipt Date: 20120320
  Transmission Date: 20120608
  Serious: Yes (Hospitalization)
  Sender: FDA-Public Use
  Company Number: US-AMGEN-USASP2012018470

PATIENT
  Age: 53 Year
  Sex: Female
  Weight: 70.5 kg

DRUGS (5)
  1. PACLITAXEL [Suspect]
     Indication: BREAST CANCER
     Dosage: 142 MG, UNK
     Dates: end: 20111110
  2. BEVACIZUMAB [Suspect]
     Indication: BREAST CANCER
     Dosage: 1065 MG, UNK
     Route: 042
     Dates: start: 20100712
  3. PEGFILGRASTIM [Suspect]
     Indication: BREAST CANCER
     Dosage: 6 MG, UNK
     Dates: end: 20110825
  4. CYCLOPHOSPHAMIDE [Suspect]
     Indication: BREAST CANCER
     Dosage: 1068 MG, UNK
  5. DOXORUBICIN HCL [Suspect]
     Indication: BREAST CANCER
     Dosage: 107 MG, UNK
     Dates: end: 20110824

REACTIONS (1)
  - MYOCARDIAL INFARCTION [None]
